FAERS Safety Report 12109999 (Version 2)
Quarter: 2016Q1

REPORT INFORMATION
  Report Type: Report from Study
  Country: IT (occurrence: IT)
  Receive Date: 20160224
  Receipt Date: 20160305
  Transmission Date: 20160526
  Serious: Yes (Death, Hospitalization, Other)
  Sender: FDA-Public Use
  Company Number: IT-BRISTOL-MYERS SQUIBB COMPANY-BMS-2016-012431

PATIENT
  Age: 64 Year
  Sex: Male
  Weight: 50 kg

DRUGS (1)
  1. NIVOLUMAB [Suspect]
     Active Substance: NIVOLUMAB
     Indication: LUNG NEOPLASM MALIGNANT
     Dosage: 3 MG/KG, Q2WK
     Route: 065
     Dates: start: 20151124, end: 20151207

REACTIONS (10)
  - Hypotension [Unknown]
  - Presyncope [Unknown]
  - Infusion [Unknown]
  - Malignant neoplasm progression [Fatal]
  - Anaemia [Unknown]
  - Hypoproteinaemia [Unknown]
  - Dyspnoea [Unknown]
  - General physical health deterioration [Fatal]
  - Hypoalbuminaemia [Unknown]
  - Transfusion [Unknown]

NARRATIVE: CASE EVENT DATE: 20151211
